FAERS Safety Report 13056469 (Version 2)
Quarter: 2019Q3

REPORT INFORMATION
  Report Type: Report from Study
  Country: CA (occurrence: CA)
  Receive Date: 20161222
  Receipt Date: 20190726
  Transmission Date: 20191004
  Serious: Yes (Other)
  Sender: FDA-Public Use
  Company Number: CA-PFIZER INC-2014217784

PATIENT
  Age: 66 Year
  Sex: Male

DRUGS (5)
  1. ENBREL [Suspect]
     Active Substance: ETANERCEPT
     Dosage: 50 MG, QWK
     Route: 065
  2. METHOTREXATE SODIUM. [Suspect]
     Active Substance: METHOTREXATE SODIUM
     Dosage: UNK
     Route: 065
  3. ENBREL [Suspect]
     Active Substance: ETANERCEPT
     Indication: PSORIASIS
     Dosage: 50 MG, 2 EVERY 1 WEEK
     Route: 058
     Dates: start: 20130413
  4. MTX [Suspect]
     Active Substance: METHOTREXATE SODIUM
     Dosage: UNK
  5. ESBRIET [Suspect]
     Active Substance: PIRFENIDONE
     Dosage: UNK
     Route: 065
     Dates: end: 201406

REACTIONS (6)
  - Asthenia [Unknown]
  - Dizziness [Unknown]
  - Pulmonary fibrosis [Unknown]
  - Fatigue [Unknown]
  - Depression [Unknown]
  - Headache [Unknown]
